FAERS Safety Report 4691356-3 (Version None)
Quarter: 2005Q2

REPORT INFORMATION
  Report Type: 
  Country: None (occurrence: None)
  Receive Date: 20050615
  Receipt Date: 20050311
  Transmission Date: 20051028
  Serious: Yes (Death)
  Sender: FDA-Public Use
  Company Number: US-MERCK-0503USA02701

PATIENT
  Age: 59 Year
  Sex: Male
  Weight: 102 kg

DRUGS (18)
  1. VIOXX [Suspect]
     Indication: ARTHRITIS
     Route: 048
     Dates: start: 20000801, end: 20041004
  2. FLONASE [Concomitant]
     Indication: HYPERSENSITIVITY
     Route: 065
  3. MAXAIR [Concomitant]
     Indication: ASTHMA
     Route: 065
  4. INDAPAMIDE [Concomitant]
     Indication: HYPERTENSION
     Route: 065
  5. PATANOL [Concomitant]
     Indication: HYPERSENSITIVITY
     Route: 065
  6. SINGULAIR [Concomitant]
     Indication: ASTHMA
     Route: 065
  7. POTASSIUM CHLORIDE [Concomitant]
     Indication: BLOOD POTASSIUM DECREASED
     Route: 065
  8. DIOVAN [Concomitant]
     Indication: HYPERTENSION
     Route: 065
     Dates: end: 20041004
  9. SEREVENT [Concomitant]
     Indication: ASTHMA
     Route: 065
  10. TRAMADOL HYDROCHLORIDE [Concomitant]
     Indication: OSTEOARTHRITIS
     Route: 065
  11. PREDNISONE [Concomitant]
     Indication: ASTHMA
     Route: 065
  12. HYDROXYZINE HYDROCHLORIDE [Concomitant]
     Indication: HYPERSENSITIVITY
     Route: 065
  13. VANCERIL [Concomitant]
     Indication: ASTHMA
     Route: 065
  14. DELTASONE [Concomitant]
     Indication: HYPERSENSITIVITY
     Route: 065
  15. POTASSIUM (UNSPECIFIED) [Concomitant]
     Indication: BLOOD POTASSIUM DECREASED
     Route: 065
  16. DEMADEX [Concomitant]
     Indication: POLYURIA
     Route: 065
     Dates: end: 20041003
  17. ANALGESIC OR ANESTHETIC (UNSPECIFIED) [Concomitant]
     Indication: OSTEOARTHRITIS
     Route: 065
     Dates: end: 20041004
  18. QVAR 40 [Concomitant]
     Route: 065

REACTIONS (3)
  - CARDIAC FAILURE CONGESTIVE [None]
  - DEATH [None]
  - MYOCARDIAL INFARCTION [None]
